FAERS Safety Report 6196224-6 (Version None)
Quarter: 2009Q2

REPORT INFORMATION
  Report Type: 
  Country: None (occurrence: None)
  Receive Date: 20090520
  Receipt Date: 20090512
  Transmission Date: 20091009
  Serious: Yes (Other)
  Sender: FDA-Public Use
  Company Number: US-ASTRAZENECA-2009UW12297

PATIENT
  Age: 34 Year
  Sex: Female

DRUGS (3)
  1. SEROQUEL XR [Suspect]
     Route: 048
     Dates: start: 20090425, end: 20090426
  2. EFFEXOR XR [Concomitant]
     Route: 048
  3. KLONOPIN [Concomitant]
     Route: 048
     Dates: start: 20090425

REACTIONS (7)
  - AGITATION [None]
  - BACK PAIN [None]
  - CHEST DISCOMFORT [None]
  - DISTURBANCE IN ATTENTION [None]
  - MYALGIA [None]
  - PAIN IN EXTREMITY [None]
  - SPEECH DISORDER [None]
